FAERS Safety Report 6335152-X (Version None)
Quarter: 2009Q3

REPORT INFORMATION
  Report Type: 
  Country: None (occurrence: None)
  Receive Date: 20090828
  Receipt Date: 20090828
  Transmission Date: 20100115
  Serious: Yes (Life-Threatening)
  Sender: FDA-Public Use
  Company Number: None

PATIENT
  Sex: Female
  Weight: 49.8957 kg

DRUGS (3)
  1. FENTANYL TRANSDERMAL SYSTEM [Suspect]
     Indication: PAIN
     Dosage: 1 PATCH 50 MCG/H 1 PATCH EVERY 72 HRS
     Dates: start: 20090401
  2. FENTANYL TRANSDERMAL SYSTEM [Suspect]
     Indication: PAIN
     Dosage: 1 PATCH 50 MCG/H 1 PATCH EVERY 72 HRS
     Dates: start: 20090501
  3. FENTANYL TRANSDERMAL SYSTEM [Suspect]
     Indication: PAIN
     Dosage: 1 PATCH 50 MCG/H 1 PATCH EVERY 72 HRS
     Dates: start: 20090601

REACTIONS (8)
  - APPLICATION SITE BURN [None]
  - APPLICATION SITE SCAB [None]
  - DEVICE ADHESION ISSUE [None]
  - DEVICE LEAKAGE [None]
  - GENERAL PHYSICAL HEALTH DETERIORATION [None]
  - PAIN [None]
  - PRODUCT SUBSTITUTION ISSUE [None]
  - WITHDRAWAL SYNDROME [None]
